FAERS Safety Report 4317969-6 (Version None)
Quarter: 2004Q1

REPORT INFORMATION
  Report Type: 
  Country: None (occurrence: None)
  Receive Date: 20040316
  Receipt Date: 20040304
  Transmission Date: 20041129
  Serious: Yes (Other)
  Sender: FDA-Public Use
  Company Number: JP-GLAXOSMITHKLINE-B0325940A

PATIENT
  Age: 28 Year
  Sex: Female
  Weight: 50 kg

DRUGS (2)
  1. VALTREX [Suspect]
     Indication: HERPES ZOSTER
     Route: 048
     Dates: start: 20040121, end: 20040124
  2. ZOVIRAX [Suspect]
     Indication: ENCEPHALITIS HERPES
     Dosage: 500MG THREE TIMES PER DAY
     Route: 042
     Dates: start: 20040124, end: 20040129

REACTIONS (8)
  - ANXIETY [None]
  - ECLAMPSIA [None]
  - ENCEPHALITIS HERPES [None]
  - HEADACHE [None]
  - HYPERTENSION [None]
  - HYPERTENSIVE ENCEPHALOPATHY [None]
  - SUBARACHNOID HAEMORRHAGE [None]
  - TONIC CONVULSION [None]
